FAERS Safety Report 23054328 (Version 1)
Quarter: 2023Q4

REPORT INFORMATION
  Report Type: Spontaneous
  Country: US (occurrence: US)
  Receive Date: 20231011
  Receipt Date: 20231011
  Transmission Date: 20240110
  Serious: Yes (Other)
  Sender: FDA-Public Use
  Company Number: US-SA-2023SA300559

PATIENT
  Age: 60 Year
  Sex: Male

DRUGS (1)
  1. RASBURICASE [Suspect]
     Active Substance: RASBURICASE
     Indication: Tumour lysis syndrome
     Dosage: UNK

REACTIONS (5)
  - Cardiac arrest [Unknown]
  - Depressed level of consciousness [Unknown]
  - Hypotension [Unknown]
  - Hypoxia [Recovering/Resolving]
  - Methaemoglobinaemia [Unknown]
